FAERS Safety Report 16170555 (Version 1)
Quarter: 2019Q2

REPORT INFORMATION
  Report Type: Spontaneous
  Country: CA (occurrence: CA)
  Receive Date: 20190408
  Receipt Date: 20190408
  Transmission Date: 20190711
  Serious: Yes (Other)
  Sender: FDA-Public Use
  Company Number: CA-PFIZER INC-2018085028

PATIENT
  Age: 48 Year
  Sex: Female

DRUGS (5)
  1. IBUPROFEN. [Suspect]
     Active Substance: IBUPROFEN
     Indication: RHEUMATOID ARTHRITIS
  2. XELJANZ [Suspect]
     Active Substance: TOFACITINIB CITRATE
     Dosage: 5 MG, 2X/DAY
     Route: 048
     Dates: start: 201901, end: 2019
  3. XELJANZ [Suspect]
     Active Substance: TOFACITINIB CITRATE
     Dosage: 5 MG, 2X/DAY
     Route: 048
     Dates: start: 201804, end: 201812
  4. XELJANZ [Suspect]
     Active Substance: TOFACITINIB CITRATE
     Indication: RHEUMATOID ARTHRITIS
     Dosage: 5 MG, 2X/DAY
     Route: 048
     Dates: start: 20170308, end: 20180410
  5. IBUPROFEN. [Suspect]
     Active Substance: IBUPROFEN
     Indication: PAIN
     Dosage: 600 MG, AS NEEDED

REACTIONS (10)
  - Sensitivity to weather change [Unknown]
  - Product dose omission [Unknown]
  - Skin atrophy [Unknown]
  - Skin haemorrhage [Unknown]
  - Musculoskeletal pain [Unknown]
  - Epilepsy [Unknown]
  - Cough [Recovered/Resolved]
  - Therapeutic product effect incomplete [Unknown]
  - Condition aggravated [Unknown]
  - Pain in extremity [Unknown]

NARRATIVE: CASE EVENT DATE: 201712
